FAERS Safety Report 7995824-8 (Version None)
Quarter: 2011Q4

REPORT INFORMATION
  Report Type: 
  Country: None (occurrence: None)
  Receive Date: 20111220
  Receipt Date: 20111213
  Transmission Date: 20120403
  Serious: Yes (Other)
  Sender: FDA-Public Use
  Company Number: US-JNJFOC-20111205929

PATIENT
  Sex: Female
  Weight: 46.72 kg

DRUGS (2)
  1. DURAGESIC-100 [Suspect]
     Indication: NECK PAIN
     Route: 062
     Dates: start: 20080101, end: 20110101
  2. DURAGESIC-100 [Suspect]
     Route: 062
     Dates: start: 20110101

REACTIONS (2)
  - WITHDRAWAL SYNDROME [None]
  - SUICIDAL IDEATION [None]
